FAERS Safety Report 5096616-2 (Version None)
Quarter: 2006Q3

REPORT INFORMATION
  Report Type: 
  Country: None (occurrence: None)
  Receive Date: 20060830
  Receipt Date: 20060824
  Transmission Date: 20061208
  Serious: Yes (Hospitalization, Other)
  Sender: FDA-Public Use
  Company Number: DEWYE540007APR06

PATIENT
  Age: 31 Year
  Sex: Female

DRUGS (7)
  1. RAPAMUNE [Suspect]
     Indication: PROPHYLAXIS AGAINST TRANSPLANT REJECTION
     Dosage: 2 MG PER DAY ORAL
     Route: 048
     Dates: start: 20060214
  2. CELLCEPT [Suspect]
     Indication: PROPHYLAXIS AGAINST TRANSPLANT REJECTION
     Dosage: 3000 MG PER DAY ORAL
     Route: 048
  3. URBASON (METHYLPREDNISOLONE, , 0) [Suspect]
     Indication: PROPHYLAXIS AGAINST TRANSPLANT REJECTION
     Dosage: 12 MG PER DAY ORAL
     Route: 048
  4. BISOPROLOL FUMARATE [Concomitant]
  5. ENALAPRIL MALEATE [Concomitant]
  6. ARANESP [Concomitant]
  7. COTRIM FORTE-RATIOPHARM (SULFAMETHOXAZOLE/TRIMETHOPRIM) [Concomitant]

REACTIONS (1)
  - KIDNEY TRANSPLANT REJECTION [None]
